FAERS Safety Report 18382027 (Version 2)
Quarter: 2020Q4

REPORT INFORMATION
  Report Type: Spontaneous
  Country: US (occurrence: US)
  Receive Date: 20201014
  Receipt Date: 20201015
  Transmission Date: 20210114
  Serious: No
  Sender: FDA-Public Use
  Company Number: US-BIOGEN-2020BI00931823

PATIENT
  Age: 29 Year
  Sex: Male

DRUGS (1)
  1. TYSABRI [Suspect]
     Active Substance: NATALIZUMAB
     Indication: MULTIPLE SCLEROSIS
     Route: 065
     Dates: start: 20200629

REACTIONS (6)
  - Product dose omission issue [Not Recovered/Not Resolved]
  - Product storage error [Unknown]
  - Vision blurred [Recovered/Resolved]
  - Motor dysfunction [Unknown]
  - Tremor [Not Recovered/Not Resolved]
  - Pupils unequal [Unknown]

NARRATIVE: CASE EVENT DATE: 20201002
